FAERS Safety Report 7771596-7 (Version None)
Quarter: 2011Q3

REPORT INFORMATION
  Report Type: 
  Country: None (occurrence: None)
  Receive Date: 20110922
  Receipt Date: 20110304
  Transmission Date: 20111222
  Serious: No
  Sender: FDA-Public Use
  Company Number: US-ASTRAZENECA-2011SE12310

PATIENT
  Age: 38 Year
  Sex: Female
  Weight: 67.6 kg

DRUGS (4)
  1. VYVANSE [Concomitant]
  2. SEROQUEL [Suspect]
     Indication: DEPRESSION
     Route: 048
     Dates: end: 20101001
  3. SEROQUEL [Suspect]
     Route: 048
     Dates: start: 20101101, end: 20110101
  4. XANAX [Concomitant]

REACTIONS (9)
  - ABDOMINAL DISTENSION [None]
  - WEIGHT INCREASED [None]
  - FLUID RETENTION [None]
  - DYSPNOEA [None]
  - BACK PAIN [None]
  - DEPRESSION [None]
  - DECREASED APPETITE [None]
  - MOVEMENT DISORDER [None]
  - ABDOMINAL PAIN [None]
